FAERS Safety Report 19165763 (Version 1)
Quarter: 2021Q2

REPORT INFORMATION
  Report Type: Spontaneous
  Country: BR (occurrence: BR)
  Receive Date: 20210422
  Receipt Date: 20210422
  Transmission Date: 20210717
  Serious: Yes (Hospitalization)
  Sender: FDA-Public Use
  Company Number: BR-ASTRAZENECA-2021A317653

PATIENT
  Age: 57 Year
  Sex: Female

DRUGS (1)
  1. XIGDUO XR [Suspect]
     Active Substance: DAPAGLIFLOZIN PROPANEDIOL\METFORMIN HYDROCHLORIDE
     Indication: DIABETES MELLITUS
     Dosage: 5/1000MG A TABLET IN THE MORNING AND A TABLET AT NIGHT
     Route: 048
     Dates: start: 2020

REACTIONS (8)
  - Excessive cerumen production [Unknown]
  - Off label use [Not Recovered/Not Resolved]
  - Product physical issue [Unknown]
  - Ear pain [Unknown]
  - Product label issue [Unknown]
  - Tympanic membrane disorder [Unknown]
  - Hypoacusis [Recovered/Resolved]
  - Weight decreased [Unknown]

NARRATIVE: CASE EVENT DATE: 2020
